FAERS Safety Report 5745867-X (Version None)
Quarter: 2008Q2

REPORT INFORMATION
  Report Type: 
  Country: None (occurrence: None)
  Receive Date: 20080520
  Receipt Date: 20080508
  Transmission Date: 20081010
  Serious: Yes (Hospitalization)
  Sender: FDA-Public Use
  Company Number: MEDI-0006795

PATIENT
  Age: 9 Month
  Sex: Male

DRUGS (5)
  1. SYNAGIS [Suspect]
  2. XOPENEX [Concomitant]
  3. PULMICORT  (BUDESOIDE) [Concomitant]
  4. QVAR    IN OPTI-CHAMBER)  (BECLOMETASONE DIPROPIONNATE) [Concomitant]
  5. ZANTAC           (RANITIDINE HCL) [Concomitant]

REACTIONS (4)
  - BRONCHIOLITIS [None]
  - BRONCHITIS [None]
  - BRONCHOSPASM [None]
  - PERTUSSIS [None]
